FAERS Safety Report 8193886-9 (Version None)
Quarter: 2012Q1

REPORT INFORMATION
  Report Type: 
  Country: None (occurrence: None)
  Receive Date: 20120308
  Receipt Date: 20120301
  Transmission Date: 20120608
  Serious: Yes (Hospitalization)
  Sender: FDA-Public Use
  Company Number: BY-UCBSA-042832

PATIENT
  Age: 58 Year
  Sex: Female
  Weight: 65 kg

DRUGS (5)
  1. MESALASINE [Concomitant]
     Indication: CROHN'S DISEASE
     Route: 048
     Dates: start: 20111004
  2. CERTOLIZUMAB PEGOL [Suspect]
     Indication: CROHN'S DISEASE
     Dosage: NO OF DOSES RECEIVED: 94
     Route: 058
     Dates: start: 20040811
  3. CERTOLIZUMAB PEGOL [Suspect]
     Dosage: CDP870-031
     Route: 058
  4. METHYLPREDNISOLONE [Concomitant]
     Indication: CROHN'S DISEASE
     Route: 048
     Dates: start: 20090501
  5. SULFASALAZINE [Concomitant]
     Indication: CROHN'S DISEASE
     Route: 048
     Dates: start: 20090501

REACTIONS (3)
  - LYMPHANGITIS [None]
  - LYMPHADENITIS [None]
  - WOUND INFECTION [None]
